FAERS Safety Report 8487700-1 (Version None)
Quarter: 2012Q3

REPORT INFORMATION
  Report Type: 
  Country: None (occurrence: None)
  Receive Date: 20120705
  Receipt Date: 20120629
  Transmission Date: 20120928
  Serious: Yes (Other)
  Sender: FDA-Public Use
  Company Number: DE-JNJFOC-20120614323

PATIENT
  Sex: Female
  Weight: 68 kg

DRUGS (1)
  1. PALIPERIDONE [Suspect]
     Indication: SCHIZOPHRENIA, PARANOID TYPE
     Route: 030
     Dates: start: 20120125, end: 20120125

REACTIONS (4)
  - PRURITUS [None]
  - INJECTION SITE INDURATION [None]
  - ERYTHEMA [None]
  - INJECTION SITE SWELLING [None]
